FAERS Safety Report 7524452-3 (Version None)
Quarter: 2011Q2

REPORT INFORMATION
  Report Type: 
  Country: None (occurrence: None)
  Receive Date: 20110606
  Receipt Date: 20110525
  Transmission Date: 20111010
  Serious: Yes (Death)
  Sender: FDA-Public Use
  Company Number: US-EISAI INC-E7272-00101-SPO-US

PATIENT
  Age: 47 Year
  Sex: Female

DRUGS (5)
  1. DOXORUBICIN HCL [Concomitant]
     Indication: PERIPHERAL T-CELL LYMPHOMA UNSPECIFIED RECURRENT
  2. PREDNISONE [Concomitant]
     Indication: PERIPHERAL T-CELL LYMPHOMA UNSPECIFIED RECURRENT
  3. ONTAK [Suspect]
     Indication: PERIPHERAL T-CELL LYMPHOMA UNSPECIFIED RECURRENT
     Dosage: UNKNOWN
     Route: 041
  4. VINCRISTINE [Concomitant]
     Indication: PERIPHERAL T-CELL LYMPHOMA UNSPECIFIED RECURRENT
  5. CYCLOPHOSPHAMIDE [Concomitant]
     Indication: PERIPHERAL T-CELL LYMPHOMA UNSPECIFIED RECURRENT

REACTIONS (1)
  - RHABDOMYOLYSIS [None]
